FAERS Safety Report 5736775-9 (Version None)
Quarter: 2008Q2

REPORT INFORMATION
  Report Type: 
  Country: None (occurrence: None)
  Receive Date: 20080513
  Receipt Date: 20080505
  Transmission Date: 20081010
  Serious: Yes (Hospitalization)
  Sender: FDA-Public Use
  Company Number: DE-ABBOTT-08P-062-0448054-00

PATIENT
  Age: 71 Year
  Sex: Female
  Weight: 77 kg

DRUGS (7)
  1. HUMIRA [Suspect]
     Indication: RHEUMATOID ARTHRITIS
     Route: 058
     Dates: start: 20070719
  2. METHOTREXATE [Concomitant]
     Indication: RHEUMATOID ARTHRITIS
     Dates: start: 20050815, end: 20080401
  3. PREDNISOLONE [Concomitant]
     Indication: RHEUMATOID ARTHRITIS
     Dates: start: 20080101
  4. PREDNISOLONE [Concomitant]
  5. PREDNISOLONE [Concomitant]
  6. NSAID'S [Concomitant]
     Indication: RHEUMATOID ARTHRITIS
  7. SASP [Concomitant]
     Indication: RHEUMATOID ARTHRITIS
     Dates: start: 20080401

REACTIONS (1)
  - FACIAL PARESIS [None]
